FAERS Safety Report 17500729 (Version 1)
Quarter: 2020Q1

REPORT INFORMATION
  Report Type: Spontaneous
  Country: GB (occurrence: GB)
  Receive Date: 20200305
  Receipt Date: 20200305
  Transmission Date: 20200409
  Serious: Yes (Life-Threatening, Hospitalization, Other)
  Sender: FDA-Public Use
  Company Number: GB-TEVA-2020-GB-1194661

PATIENT
  Age: 14 Year
  Sex: Female
  Weight: 87 kg

DRUGS (2)
  1. CARBAMAZEPINE. [Suspect]
     Active Substance: CARBAMAZEPINE
     Indication: EPILEPSY
     Dosage: 600 MG
     Route: 048
     Dates: start: 201911, end: 20200105
  2. CLEMIZOLE PENICILLIN [Concomitant]
     Active Substance: CLEMIZOLE PENICILLIN

REACTIONS (6)
  - Skin exfoliation [Recovering/Resolving]
  - Joint swelling [Recovering/Resolving]
  - Lip swelling [Recovering/Resolving]
  - Streptococcal infection [Recovering/Resolving]
  - Peripheral swelling [Recovering/Resolving]
  - Purpura [Recovering/Resolving]

NARRATIVE: CASE EVENT DATE: 20191215
